FAERS Safety Report 4998869-5 (Version None)
Quarter: 2006Q2

REPORT INFORMATION
  Report Type: 
  Country: None (occurrence: None)
  Receive Date: 20060510
  Receipt Date: 20060405
  Transmission Date: 20061013
  Serious: Yes (Hospitalization, Disabling, Other)
  Sender: FDA-Public Use
  Company Number: US-MERCK-0604USA00709

PATIENT
  Age: 48 Year
  Sex: Female
  Weight: 86 kg

DRUGS (1)
  1. VIOXX [Suspect]
     Indication: ARTHRITIS
     Route: 048

REACTIONS (3)
  - BACK INJURY [None]
  - CARDIAC DISORDER [None]
  - MYOCARDIAL INFARCTION [None]
